FAERS Safety Report 4749838-1 (Version None)
Quarter: 2005Q3

REPORT INFORMATION
  Report Type: 
  Country: None (occurrence: None)
  Receive Date: 20050818
  Receipt Date: 20050805
  Transmission Date: 20060218
  Serious: Yes (Life-Threatening, Hospitalization, Other)
  Sender: FDA-Public Use
  Company Number: 2004-0007826

PATIENT
  Age: 56 Year
  Sex: Male
  Weight: 55.7924 kg

DRUGS (9)
  1. VIREAD [Suspect]
     Indication: HIV INFECTION
     Dosage: 300 MG, 1 IN 1 D, ORAL
     Route: 048
     Dates: start: 20020501, end: 20041101
  2. KALETRA [Concomitant]
  3. D4T (STAVUDINE) [Concomitant]
  4. SUSTIVA [Concomitant]
  5. FLUNISOLIDE (FLUNISOLIDE) [Concomitant]
  6. ALBUTEROL [Concomitant]
  7. MULTIVITAMIN (MULTIPLE VITAMINS) [Concomitant]
  8. TRIRETINOIN/HYDROQUINONE CREAM (TRETINONIN) [Concomitant]
  9. LOPERAMIDE HCL [Concomitant]

REACTIONS (21)
  - ACIDOSIS [None]
  - ALANINE AMINOTRANSFERASE INCREASED [None]
  - BLOOD GLUCOSE INCREASED [None]
  - CONDITION AGGRAVATED [None]
  - CONSTIPATION [None]
  - DRUG TOXICITY [None]
  - ELECTROCARDIOGRAM T WAVE AMPLITUDE DECREASED [None]
  - ELECTROCARDIOGRAM U-WAVE ABNORMALITY [None]
  - ELECTROLYTE IMBALANCE [None]
  - FALL [None]
  - FANCONI SYNDROME ACQUIRED [None]
  - FLUID INTAKE REDUCED [None]
  - INAPPROPRIATE SCHEDULE OF DRUG ADMINISTRATION [None]
  - INCORRECT DOSE ADMINISTERED [None]
  - LIMB INJURY [None]
  - PO2 DECREASED [None]
  - RENAL FAILURE ACUTE [None]
  - RENAL FAILURE CHRONIC [None]
  - RHABDOMYOLYSIS [None]
  - VIRAL INFECTION [None]
  - WEIGHT DECREASED [None]
